FAERS Safety Report 5203860-X (Version None)
Quarter: 2007Q1

REPORT INFORMATION
  Report Type: 
  Country: None (occurrence: None)
  Receive Date: 20070105
  Receipt Date: 20070105
  Transmission Date: 20070707
  Serious: Yes (Life-Threatening)
  Sender: FDA-Public Use
  Company Number: None

PATIENT
  Age: 54 Year
  Sex: Male
  Weight: 79 kg

DRUGS (13)
  1. LINEZOLID [Suspect]
     Indication: WOUND INFECTION
     Dosage: 600 MG PO Q12H
     Route: 048
     Dates: start: 20060405, end: 20060418
  2. MYCOPHENOLATE MOFETIL [Concomitant]
  3. TACROLIMUS [Concomitant]
  4. PREDNISONE TAB [Concomitant]
  5. VALGANCICLOVIR HCL [Concomitant]
  6. TMP/SXP [Concomitant]
  7. NYSTATIN [Concomitant]
  8. CHLORHEXIDINE [Concomitant]
  9. INSULIN [Concomitant]
  10. RANITIDINE [Concomitant]
  11. FOLIC ACID [Concomitant]
  12. ASCORBIC ACID [Concomitant]
  13. FUROSEMIDE [Concomitant]

REACTIONS (2)
  - LEUKOPENIA [None]
  - WOUND DEBRIDEMENT [None]
